FAERS Safety Report 8116884-X (Version None)
Quarter: 2012Q1

REPORT INFORMATION
  Report Type: 
  Country: None (occurrence: None)
  Receive Date: 20120206
  Receipt Date: 20120131
  Transmission Date: 20120608
  Serious: Yes (Other)
  Sender: FDA-Public Use
  Company Number: PHHY2012NL008384

PATIENT
  Sex: Female

DRUGS (5)
  1. LEVONORGESTREL + ETHINYL ESTRADIOL [Concomitant]
     Indication: CONTRACEPTION
     Dosage: 1 DF, CYCLICAL
     Route: 048
  2. LIVOCAB [Concomitant]
     Dosage: 1 DF, BID
  3. CONCERTA [Interacting]
     Indication: ATTENTION DEFICIT/HYPERACTIVITY DISORDER
     Dosage: 36 MG, QD
     Dates: start: 20070316
  4. TEMAZEPAM [Suspect]
     Indication: INSOMNIA
     Dosage: 20 MG, QD (WHEN NEDED)
     Dates: start: 20111214
  5. METHYLPHENIDATE HCL [Interacting]
     Dosage: 10 MG (1-2 TIMES/DAY)
     Dates: start: 20060101

REACTIONS (2)
  - HALLUCINATION [None]
  - DRUG INTERACTION [None]
